FAERS Safety Report 5256050-9 (Version None)
Quarter: 2007Q1

REPORT INFORMATION
  Report Type: 
  Country: None (occurrence: None)
  Receive Date: 20070301
  Receipt Date: 20070215
  Transmission Date: 20070707
  Serious: Yes (Other)
  Sender: FDA-Public Use
  Company Number: 2007RR-05830

PATIENT
  Sex: Male

DRUGS (7)
  1. PAROXETINE HYDROCHLORIDE [Suspect]
     Dates: start: 19990901, end: 20021201
  2. CODEINE PHOSPHATE(CODEINE) UNKNOWN [Suspect]
  3. ALCOHOL(ALCOHOL) [Suspect]
  4. IBUPROFEN [Suspect]
  5. IBUPROFEN [Suspect]
  6. COCAINE [Concomitant]
  7. METHYLENEDIOXYMETHAPHETAMINE [Concomitant]

REACTIONS (7)
  - AGGRESSION [None]
  - DRUG WITHDRAWAL SYNDROME [None]
  - OVERDOSE [None]
  - SEXUAL DYSFUNCTION [None]
  - SOCIAL PHOBIA [None]
  - SUICIDAL IDEATION [None]
  - SUICIDE ATTEMPT [None]
